FAERS Safety Report 5357910-0 (Version None)
Quarter: 2007Q2

REPORT INFORMATION
  Report Type: 
  Country: None (occurrence: None)
  Receive Date: 20070612
  Receipt Date: 20070529
  Transmission Date: 20071010
  Serious: Yes (Hospitalization)
  Sender: FDA-Public Use
  Company Number: US-CVT-070111

PATIENT
  Age: 69 Year
  Sex: Male

DRUGS (18)
  1. RANEXA [Suspect]
     Indication: ANGINA PECTORIS
     Dosage: 500 MG, BID, ORAL
     Route: 048
     Dates: start: 20070504, end: 20070517
  2. COLCHICUM JTL LIQ [Suspect]
     Dates: end: 20070517
  3. ALLOPURINOL [Concomitant]
  4. ATENOLOL [Concomitant]
  5. PRAVACHOL [Concomitant]
  6. VITAMIN E [Concomitant]
  7. LISINOPRIL [Concomitant]
  8. AMITRIPTYLINE HCL [Concomitant]
  9. FOLIC ACID [Concomitant]
  10. IMDUR [Concomitant]
  11. WARFARIN SODIUM [Concomitant]
  12. NEURONTIN [Concomitant]
  13. NITROSTAT [Concomitant]
  14. NIASPAN [Concomitant]
  15. ASPIRN (ACETYLSALICYLIC ACID) [Concomitant]
  16. AMBIEN [Concomitant]
  17. DULCOLAX [Concomitant]
  18. HYDROCHLOROTHIAZIDE [Concomitant]

REACTIONS (14)
  - ACUTE CORONARY SYNDROME [None]
  - BRADYCARDIA [None]
  - COORDINATION ABNORMAL [None]
  - DIARRHOEA [None]
  - DRUG INTERACTION [None]
  - GAIT DISTURBANCE [None]
  - HYPOTENSION [None]
  - MYOCARDIAL ISCHAEMIA [None]
  - NAUSEA [None]
  - NEUROPATHY PERIPHERAL [None]
  - OBSTRUCTIVE UROPATHY [None]
  - RENAL FAILURE ACUTE [None]
  - SHOCK [None]
  - VOMITING [None]
